FAERS Safety Report 16756475 (Version 1)
Quarter: 2019Q3

REPORT INFORMATION
  Report Type: Spontaneous
  Country: ZA (occurrence: ZA)
  Receive Date: 20190829
  Receipt Date: 20190829
  Transmission Date: 20191005
  Serious: Yes (Hospitalization, Other)
  Sender: FDA-Public Use
  Company Number: ZA-ASTRAZENECA-2019SF21322

PATIENT
  Sex: Male

DRUGS (6)
  1. TRUSTAN [Suspect]
     Active Substance: ESOMEPRAZOLE
     Route: 048
  2. LASIX [Concomitant]
     Active Substance: FUROSEMIDE
  3. CARLOC [Concomitant]
     Active Substance: CARVEDILOL
  4. SPIRACTIN [Concomitant]
  5. WARFARIN [Concomitant]
     Active Substance: WARFARIN
     Dosage: 5MG, DOSAGE DEPENDENT ON INR
  6. SANDOZ K [Concomitant]
     Active Substance: POTASSIUM CHLORIDE

REACTIONS (8)
  - Lower respiratory tract infection [Unknown]
  - Fall [Unknown]
  - Hip fracture [Unknown]
  - Wound sepsis [Unknown]
  - Myiasis [Unknown]
  - Cardiac failure [Unknown]
  - Haematoma [Unknown]
  - Generalised oedema [Unknown]

NARRATIVE: CASE EVENT DATE: 201901
